FAERS Safety Report 23862587 (Version 3)
Quarter: 2024Q2

REPORT INFORMATION
  Report Type: Report from Study
  Country: ES (occurrence: ES)
  Receive Date: 20240516
  Receipt Date: 20240613
  Transmission Date: 20240716
  Serious: Yes (Hospitalization)
  Sender: FDA-Public Use
  Company Number: ES-ROCHE-3505444

PATIENT
  Age: 66 Year
  Sex: Female
  Weight: 59 kg

DRUGS (3)
  1. CARBOPLATIN [Suspect]
     Active Substance: CARBOPLATIN
     Indication: Neoplasm malignant
     Dosage: ON 23SEP2022, SHE RECEIVED THE MOST RECENT DOSE OF CARBOPLATINE (480 MG) PRIOR TO AE/SAE.
     Route: 042
     Dates: start: 20220902, end: 20220923
  2. PEMETREXED [Suspect]
     Active Substance: PEMETREXED
     Indication: Neoplasm malignant
     Dosage: UNK, EVERY 3 WEEKS
     Route: 042
     Dates: start: 20220902, end: 20221118
  3. PEMBROLIZUMAB [Suspect]
     Active Substance: PEMBROLIZUMAB
     Indication: Neoplasm malignant
     Dosage: ON 23SEP2022, SHE RECEIVED THE MOST RECENT DOSE OF PEMBROLIZUMAB (200 MG) PRIOR TO AE/SAE
     Route: 042
     Dates: start: 20220902, end: 20230330

REACTIONS (1)
  - Pancytopenia [Recovered/Resolved]

NARRATIVE: CASE EVENT DATE: 20221004
